FAERS Safety Report 6957231-6 (Version None)
Quarter: 2010Q3

REPORT INFORMATION
  Report Type: 
  Country: None (occurrence: None)
  Receive Date: 20100826
  Receipt Date: 20100811
  Transmission Date: 20110219
  Serious: No
  Sender: FDA-Public Use
  Company Number: 016848

PATIENT
  Sex: Male
  Weight: 89.8 kg

DRUGS (7)
  1. KEPPRA [Suspect]
     Indication: CONVULSION
     Dosage: (500 MG BID), (2000 MG), (2000 MG)
     Dates: start: 20090818, end: 20090901
  2. KEPPRA [Suspect]
     Indication: CONVULSION
     Dosage: (500 MG BID), (2000 MG), (2000 MG)
     Dates: start: 20090901, end: 20100311
  3. KEPPRA [Suspect]
     Indication: CONVULSION
     Dosage: (500 MG BID), (2000 MG), (2000 MG)
     Dates: start: 20100312
  4. LACOSAMIDE [Suspect]
     Indication: CONVULSION
     Dosage: (200 MG ORAL)
     Route: 048
     Dates: start: 20090101
  5. KEPPRA [Suspect]
     Indication: CONVULSION
     Dosage: (500 MG BID)
     Dates: start: 20090805, end: 20090818
  6. CELEXA [Concomitant]
  7. KLONOPIN [Concomitant]

REACTIONS (1)
  - CONVULSION [None]
